FAERS Safety Report 23956235 (Version 1)
Quarter: 2024Q2

REPORT INFORMATION
  Report Type: Spontaneous
  Country: US (occurrence: US)
  Receive Date: 20240610
  Receipt Date: 20240610
  Transmission Date: 20240716
  Serious: No
  Sender: FDA-Public Use
  Company Number: US-SA-2024SA167927

PATIENT
  Age: 27 Year
  Sex: Male

DRUGS (6)
  1. ELOCTATE [Suspect]
     Active Substance: EFMOROCTOCOG ALFA
     Indication: Factor VIII deficiency
     Dosage: 5550 U (4995-6105), Q5D, FOR PROPHYLAXIS
     Route: 042
     Dates: start: 202405
  2. ELOCTATE [Suspect]
     Active Substance: EFMOROCTOCOG ALFA
     Indication: Factor VIII deficiency
     Dosage: 5550 U (4995-6105), Q5D, FOR PROPHYLAXIS
     Route: 042
     Dates: start: 202405
  3. ELOCTATE [Suspect]
     Active Substance: EFMOROCTOCOG ALFA
     Dosage: 3000 U (2700-3300), PRN (DAILY AS NEEDED FOR MINOR BLEEDS)
     Route: 042
     Dates: start: 202405
  4. ELOCTATE [Suspect]
     Active Substance: EFMOROCTOCOG ALFA
     Dosage: 3000 U (2700-3300), PRN (DAILY AS NEEDED FOR MINOR BLEEDS)
     Route: 042
     Dates: start: 202405
  5. ELOCTATE [Suspect]
     Active Substance: EFMOROCTOCOG ALFA
     Dosage: 6000 U, PRN (FOR MAJOR BLEEDS)
     Route: 042
     Dates: start: 202405
  6. ELOCTATE [Suspect]
     Active Substance: EFMOROCTOCOG ALFA
     Dosage: 6000 U, PRN (FOR MAJOR BLEEDS)
     Route: 042
     Dates: start: 202405

REACTIONS (1)
  - Haemorrhage [Not Recovered/Not Resolved]

NARRATIVE: CASE EVENT DATE: 20240501
